FAERS Safety Report 21012741 (Version 2)
Quarter: 2022Q3

REPORT INFORMATION
  Report Type: Spontaneous
  Country: US (occurrence: US)
  Receive Date: 20220627
  Receipt Date: 20220923
  Transmission Date: 20221027
  Serious: No
  Sender: FDA-Public Use
  Company Number: US-SA-SAC20220617000272

PATIENT
  Age: 49 Year
  Sex: Male

DRUGS (1)
  1. DUPIXENT [Suspect]
     Active Substance: DUPILUMAB
     Dosage: 300 MG FRE:OTHER
     Route: 058
     Dates: start: 202203

REACTIONS (7)
  - Injection site dryness [Unknown]
  - Injection site exfoliation [Unknown]
  - Eye pain [Unknown]
  - Injection site pruritus [Unknown]
  - Eye discharge [Unknown]
  - Rash [Unknown]
  - Dry eye [Unknown]

NARRATIVE: CASE EVENT DATE: 20220101
